FAERS Safety Report 4442757-X (Version None)
Quarter: 2004Q3

REPORT INFORMATION
  Report Type: 
  Country: None (occurrence: None)
  Receive Date: 20040903
  Receipt Date: 20040716
  Transmission Date: 20050211
  Serious: Yes (Other)
  Sender: FDA-Public Use
  Company Number: 2004UW12307

PATIENT
  Age: 59 Year
  Sex: Female
  Weight: 106.1417 kg

DRUGS (5)
  1. CRESTOR [Suspect]
     Indication: DYSLIPIDAEMIA
     Dosage: 10 MG QD PO
     Route: 048
     Dates: start: 20040525
  2. VASOTEC [Concomitant]
  3. AMBIEN [Concomitant]
  4. TOPROL-XL [Concomitant]
  5. LOTREL [Concomitant]

REACTIONS (1)
  - HAIR TEXTURE ABNORMAL [None]
